FAERS Safety Report 18107227 (Version 1)
Quarter: 2020Q3

REPORT INFORMATION
  Report Type: Spontaneous
  Country: US (occurrence: US)
  Receive Date: 20200804
  Receipt Date: 20200804
  Transmission Date: 20201103
  Serious: Yes (Other)
  Sender: FDA-Public Use
  Company Number: None

PATIENT
  Age: 32 Year
  Sex: Female
  Weight: 52.2 kg

DRUGS (1)
  1. INFLIXIMAB [Suspect]
     Active Substance: INFLIXIMAB
     Indication: CROHN^S DISEASE
     Dosage: ?          OTHER FREQUENCY:8 WEEKS;?
     Route: 042
     Dates: start: 20170103, end: 20190525

REACTIONS (11)
  - Tremor [None]
  - Diarrhoea [None]
  - Dyspnoea [None]
  - Taste disorder [None]
  - Food intolerance [None]
  - Anaphylactic reaction [None]
  - Muscle disorder [None]
  - Tinnitus [None]
  - Cytokine storm [None]
  - Panic attack [None]
  - Food allergy [None]

NARRATIVE: CASE EVENT DATE: 20190525
